FAERS Safety Report 21516377 (Version 1)
Quarter: 2022Q4

REPORT INFORMATION
  Report Type: Spontaneous
  Country: US (occurrence: US)
  Receive Date: 20221027
  Receipt Date: 20221027
  Transmission Date: 20230113
  Serious: Yes (Other)
  Sender: FDA-Public Use
  Company Number: US-BAUSCH-BL-2022-023976

PATIENT
  Age: 50 Year
  Sex: Female
  Weight: 108.9 kg

DRUGS (10)
  1. DEXAMETHASONE [Suspect]
     Active Substance: DEXAMETHASONE
     Indication: COVID-19
     Dosage: 4 TO 10 MG, FROM DAY 0 TO 10 OF HOSPITALIZATION
     Route: 042
     Dates: start: 2021, end: 2021
  2. TOCILIZUMAB [Suspect]
     Active Substance: TOCILIZUMAB
     Indication: COVID-19
     Dosage: ON DAY 0 OF HOSPITALIZATION; ONCE
     Route: 042
     Dates: start: 2021, end: 2021
  3. LEVOFLOXACIN [Concomitant]
     Active Substance: LEVOFLOXACIN
     Indication: Sinusitis
     Route: 048
     Dates: start: 2021, end: 2021
  4. NIVOLUMAB [Concomitant]
     Active Substance: NIVOLUMAB
     Indication: Hodgkin^s disease
     Route: 042
  5. OXYGEN [Concomitant]
     Active Substance: OXYGEN
     Indication: Oxygen therapy
     Dosage: NASAL CANNULA
     Route: 045
     Dates: start: 2021
  6. REMDESIVIR [Concomitant]
     Active Substance: REMDESIVIR
     Indication: COVID-19
     Dosage: ON DAY 0; ONCE
     Route: 042
     Dates: start: 2021, end: 2021
  7. REMDESIVIR [Concomitant]
     Active Substance: REMDESIVIR
     Dosage: FOLLOWING DOSE TILL DAY 9
     Route: 042
     Dates: start: 2021, end: 2021
  8. CEFEPIME [Concomitant]
     Active Substance: CEFEPIME HYDROCHLORIDE
     Indication: Antibiotic prophylaxis
     Route: 042
     Dates: start: 2021
  9. VANCOMYCIN [Concomitant]
     Active Substance: VANCOMYCIN
     Indication: Antibiotic prophylaxis
     Dosage: LOADING DOSE
     Route: 042
     Dates: start: 2021, end: 2021
  10. VANCOMYCIN [Concomitant]
     Active Substance: VANCOMYCIN
     Route: 042
     Dates: start: 2021, end: 2021

REACTIONS (1)
  - Pneumonia bordetella [Recovered/Resolved]

NARRATIVE: CASE EVENT DATE: 20210101
